FAERS Safety Report 5419164-6 (Version None)
Quarter: 2007Q3

REPORT INFORMATION
  Report Type: 
  Country: None (occurrence: None)
  Receive Date: 20070815
  Receipt Date: 20070806
  Transmission Date: 20080115
  Serious: Yes (Other)
  Sender: FDA-Public Use
  Company Number: 5734 / 2007S1007298

PATIENT
  Age: 26 Year
  Sex: Female
  Weight: 62.1428 kg

DRUGS (5)
  1. AMNESTEEM [Suspect]
     Indication: ACNE
     Dosage: 40 MG, QD, PO
     Route: 048
     Dates: start: 20070619, end: 20070713
  2. CLARAVIS [Suspect]
     Dosage: 30 MG, BID, PO
     Route: 048
     Dates: start: 20070413, end: 20070513
  3. YASMIN [Concomitant]
  4. BERLEX (DROSPIRENONE /ETHINYL ESTRADIOL) [Concomitant]
  5. CONTRACEPTION [Concomitant]

REACTIONS (3)
  - DRUG EXPOSURE DURING PREGNANCY [None]
  - MIGRAINE [None]
  - PREGNANCY [None]
